FAERS Safety Report 22386093 (Version 1)
Quarter: 2023Q2

REPORT INFORMATION
  Report Type: Spontaneous
  Country: AU (occurrence: AU)
  Receive Date: 20230530
  Receipt Date: 20230530
  Transmission Date: 20230722
  Serious: Yes (Other)
  Sender: FDA-Public Use
  Company Number: AU-GE HEALTHCARE-2023CSU004118

PATIENT
  Age: 76 Year
  Sex: Male
  Weight: 120 kg

DRUGS (2)
  1. OMNIPAQUE [Suspect]
     Active Substance: IOHEXOL
     Indication: Computerised tomogram neck
     Dosage: 50 ML, SINGLE
     Route: 042
     Dates: start: 20230524, end: 20230524
  2. OMNIPAQUE [Suspect]
     Active Substance: IOHEXOL
     Indication: Aphasia
     Dosage: 50 ML, SINGLE
     Route: 042
     Dates: start: 20230524, end: 20230524

REACTIONS (4)
  - Sneezing [Recovered/Resolved]
  - Lacrimation increased [Recovered/Resolved]
  - Periorbital swelling [Recovered/Resolved]
  - Eye pruritus [Recovered/Resolved]

NARRATIVE: CASE EVENT DATE: 20230524
